FAERS Safety Report 17159423 (Version 1)
Quarter: 2019Q4

REPORT INFORMATION
  Report Type: Spontaneous
  Country: JP (occurrence: JP)
  Receive Date: 20191216
  Receipt Date: 20191216
  Transmission Date: 20200122
  Serious: Yes (Other)
  Sender: FDA-Public Use
  Company Number: JP-BAYER-2019-223249

PATIENT
  Age: 81 Year
  Sex: Male

DRUGS (5)
  1. XOFIGO [Suspect]
     Active Substance: RADIUM RA-223 DICHLORIDE
     Indication: METASTASES TO BONE
     Dosage: 55 KB/KG, EVERY 4 WEEKS
     Route: 042
  2. XOFIGO [Suspect]
     Active Substance: RADIUM RA-223 DICHLORIDE
     Indication: METASTASES TO BONE
     Dosage: 55 KB/KG, EVERY 4 WEEKS
     Route: 042
  3. XOFIGO [Suspect]
     Active Substance: RADIUM RA-223 DICHLORIDE
     Indication: METASTASES TO BONE
     Dosage: 55 KB/KG, EVERY 4 WEEKS
     Route: 042
     Dates: end: 20190703
  4. XOFIGO [Suspect]
     Active Substance: RADIUM RA-223 DICHLORIDE
     Indication: METASTASES TO BONE
     Dosage: 55 KB/KG, EVERY 4 WEEKS
     Route: 042
     Dates: start: 20190313
  5. XOFIGO [Suspect]
     Active Substance: RADIUM RA-223 DICHLORIDE
     Indication: METASTASES TO BONE
     Dosage: 55 KB/KG, EVERY 4 WEEKS
     Route: 042

REACTIONS (3)
  - Therapeutic product effect incomplete [None]
  - Therapy cessation [None]
  - Metastases to bone [Not Recovered/Not Resolved]

NARRATIVE: CASE EVENT DATE: 20190703
